FAERS Safety Report 8333133-8 (Version None)
Quarter: 2012Q2

REPORT INFORMATION
  Report Type: 
  Country: None (occurrence: None)
  Receive Date: 20120503
  Receipt Date: 20120423
  Transmission Date: 20120825
  Serious: Yes (Other)
  Sender: FDA-Public Use
  Company Number: AU-JNJFOC-20120403145

PATIENT
  Sex: Female
  Weight: 117 kg

DRUGS (12)
  1. STELARA [Suspect]
     Route: 058
     Dates: start: 20110516, end: 20110516
  2. STELARA [Suspect]
     Route: 058
     Dates: start: 20110817, end: 20110817
  3. PERINDOPRIL ERBUMINE [Concomitant]
     Route: 065
  4. STELARA [Suspect]
     Indication: PSORIASIS
     Route: 058
     Dates: start: 20110418, end: 20110418
  5. FISH OIL [Concomitant]
     Route: 065
  6. LEVONORGESTREL AND ETHINYL ESTRADIOL [Concomitant]
     Route: 065
  7. STELARA [Suspect]
     Route: 058
     Dates: start: 20111117, end: 20111117
  8. BYETTA [Concomitant]
     Route: 065
  9. METFORMIN HCL [Concomitant]
     Route: 065
  10. FOLIC ACID [Concomitant]
     Route: 065
  11. STELARA [Suspect]
     Route: 058
     Dates: start: 20120218, end: 20120218
  12. METHOTREXATE [Suspect]
     Indication: PSORIASIS
     Route: 048

REACTIONS (2)
  - CONDITION AGGRAVATED [None]
  - PARONYCHIA [None]
